FAERS Safety Report 5170459-3 (Version None)
Quarter: 2006Q4

REPORT INFORMATION
  Report Type: 
  Country: None (occurrence: None)
  Receive Date: 20061204
  Receipt Date: 20061122
  Transmission Date: 20070319
  Serious: Yes (Hospitalization)
  Sender: FDA-Public Use
  Company Number: S06-SWE-05025-01

PATIENT
  Age: 90 Year
  Sex: Female

DRUGS (5)
  1. CITALOPRAM HYDROBROMIDE [Suspect]
     Indication: DEPRESSION
     Dates: start: 20060601, end: 20060728
  2. ENALAPRIL MALEATE [Suspect]
  3. IMPORTAL EX-LAX (LACTITOL) [Concomitant]
  4. LAKTULOS (LACTULOSE) [Concomitant]
  5. NORMORIX MITE [Suspect]

REACTIONS (1)
  - INAPPROPRIATE ANTIDIURETIC HORMONE SECRETION [None]
